FAERS Safety Report 6200891-8 (Version None)
Quarter: 2009Q2

REPORT INFORMATION
  Report Type: 
  Country: None (occurrence: None)
  Receive Date: 20090523
  Receipt Date: 20081027
  Transmission Date: 20091009
  Serious: Yes (Hospitalization, Other)
  Sender: FDA-Public Use
  Company Number: US-ALEXION-A200800163

PATIENT
  Sex: Female

DRUGS (9)
  1. SOLIRIS [Suspect]
     Indication: PAROXYSMAL NOCTURNAL HAEMOGLOBINURIA
     Dosage: 600 MG, SINGLE
     Route: 042
     Dates: start: 20080623, end: 20080623
  2. SOLIRIS [Suspect]
     Dosage: 600 MG, SINGLE
     Route: 042
     Dates: start: 20080630, end: 20080630
  3. ESTROGEN NOS [Concomitant]
     Indication: ARTIFICIAL MENOPAUSE
     Dosage: UNK, QD
     Route: 048
  4. COUMADIN [Concomitant]
     Indication: PROPHYLAXIS
     Dosage: UNK, QD
     Route: 048
  5. LASIX [Concomitant]
  6. POTASSIUM CHLORIDE [Concomitant]
     Dosage: UNK, QD
     Route: 048
  7. PROTONIX                           /01263201/ [Concomitant]
     Dosage: 40 MG, QD
  8. LUNESTA [Concomitant]
     Dosage: 2 MG, HS
  9. PREDNISONE [Concomitant]
     Dosage: 10 MG, QD

REACTIONS (8)
  - ATRIAL FIBRILLATION [None]
  - CARDIAC FAILURE CONGESTIVE [None]
  - COMPLEMENT FACTOR DECREASED [None]
  - HAEMOLYSIS [None]
  - HIV TEST POSITIVE [None]
  - ILEUS [None]
  - PROTEINURIA [None]
  - RENAL FAILURE ACUTE [None]
